FAERS Safety Report 8322704-0 (Version None)
Quarter: 2012Q2

REPORT INFORMATION
  Report Type: 
  Country: None (occurrence: None)
  Receive Date: 20120430
  Receipt Date: 20120424
  Transmission Date: 20120825
  Serious: Yes (Life-Threatening, Other)
  Sender: FDA-Public Use
  Company Number: US-ASTRAZENECA-2012SE22989

PATIENT
  Age: 68 Year
  Sex: Female

DRUGS (5)
  1. ZESTORETIC [Suspect]
     Indication: BLOOD PRESSURE ABNORMAL
     Route: 048
  2. NEXIUM [Concomitant]
  3. PROCARDIA XL [Concomitant]
  4. TOPROL-XL [Suspect]
     Route: 048
  5. SIMVASTATIN [Concomitant]

REACTIONS (4)
  - APPARENT DEATH [None]
  - ULCER HAEMORRHAGE [None]
  - DRUG HYPERSENSITIVITY [None]
  - PANCREATITIS [None]
